FAERS Safety Report 12214089 (Version 1)
Quarter: 2016Q1

REPORT INFORMATION
  Report Type: Spontaneous
  Country: JP (occurrence: JP)
  Receive Date: 20160328
  Receipt Date: 20160328
  Transmission Date: 20160526
  Serious: Yes (Death)
  Sender: FDA-Public Use
  Company Number: JP-APOTEX-2016AP007283

PATIENT

DRUGS (7)
  1. ARTIST [Concomitant]
     Active Substance: CARVEDILOL
  2. BAYASPIRIN [Concomitant]
     Active Substance: ASPIRIN
  3. NOIDOUBLE [Concomitant]
     Active Substance: SPIRONOLACTONE
  4. DIGOXIN. [Concomitant]
     Active Substance: DIGOXIN
  5. FUROSEMIDE. [Concomitant]
     Active Substance: FUROSEMIDE
  6. CRESTOR [Concomitant]
     Active Substance: ROSUVASTATIN CALCIUM
  7. PAXIL CR [Suspect]
     Active Substance: PAROXETINE HYDROCHLORIDE
     Indication: PRODUCT USED FOR UNKNOWN INDICATION
     Dosage: UNK, QD
     Route: 048
     Dates: start: 20160127, end: 20160201

REACTIONS (1)
  - Liver disorder [Fatal]
